FAERS Safety Report 9128683 (Version 1)
Quarter: 2013Q1

REPORT INFORMATION
  Report Type: Spontaneous
  Country: US (occurrence: US)
  Receive Date: 20130125
  Receipt Date: 20130125
  Transmission Date: 20140127
  Serious: Yes (Hospitalization, Other)
  Sender: FDA-Public Use
  Company Number: US-ELI_LILLY_AND_COMPANY-US201301005320

PATIENT
  Sex: Male

DRUGS (4)
  1. BYETTA [Suspect]
     Indication: TYPE 2 DIABETES MELLITUS
     Dosage: 5 UG, BID
     Route: 058
  2. BYETTA [Suspect]
     Dosage: 10 UG, BID
     Route: 058
     Dates: end: 201111
  3. METFORMIN [Concomitant]
     Indication: TYPE 2 DIABETES MELLITUS
     Dosage: 1000 MG, EACH MORNING
     Route: 048
  4. METFORMIN [Concomitant]
     Dosage: 1500 MG, EACH EVENING
     Route: 048

REACTIONS (4)
  - Benign neoplasm [Unknown]
  - Wound infection staphylococcal [Unknown]
  - Diabetes mellitus inadequate control [Unknown]
  - Weight decreased [Recovered/Resolved]
